FAERS Safety Report 20788029 (Version 2)
Quarter: 2023Q4

REPORT INFORMATION
  Report Type: Spontaneous
  Country: US (occurrence: US)
  Receive Date: 20220505
  Receipt Date: 20231019
  Transmission Date: 20240109
  Serious: No
  Sender: FDA-Public Use
  Company Number: US-SA-SAC20220502001354

PATIENT
  Age: 41 Year
  Sex: Female
  Weight: 55.3 kg

DRUGS (8)
  1. DUPIXENT [Suspect]
     Active Substance: DUPILUMAB
     Indication: Dermatitis atopic
     Dosage: 600 MG, 1X
     Route: 058
     Dates: start: 20220415, end: 20220415
  2. DUPIXENT [Suspect]
     Active Substance: DUPILUMAB
     Dosage: 300 MG, QOW
     Route: 058
     Dates: start: 20220429
  3. DUPIXENT [Suspect]
     Active Substance: DUPILUMAB
     Dosage: 300 MG, Q3W
     Route: 058
  4. AQUAPHOR [Concomitant]
     Active Substance: PETROLATUM
  5. DIAZEPAM [Concomitant]
     Active Substance: DIAZEPAM
  6. BUPROPION HYDROCHLORIDE [Concomitant]
     Active Substance: BUPROPION HYDROCHLORIDE
  7. MELATONIN [Concomitant]
     Active Substance: MELATONIN
  8. MOTRIN IB [Concomitant]
     Active Substance: IBUPROFEN

REACTIONS (9)
  - Fall [Recovered/Resolved]
  - Fatigue [Recovered/Resolved]
  - Injection site nodule [Recovered/Resolved]
  - Arthropathy [Recovered/Resolved]
  - Somnolence [Recovered/Resolved]
  - Asthenopia [Recovered/Resolved]
  - Skin exfoliation [Not Recovered/Not Resolved]
  - Arthralgia [Recovered/Resolved]
  - Inappropriate schedule of product administration [Unknown]

NARRATIVE: CASE EVENT DATE: 20220422
